FAERS Safety Report 9041123 (Version 1)
Quarter: 2013Q1

REPORT INFORMATION
  Report Type: Spontaneous
  Country: US (occurrence: None)
  Receive Date: 20130124
  Receipt Date: 20130124
  Transmission Date: 20140127
  Serious: Yes (Other)
  Sender: FDA-Public Use
  Company Number: None

PATIENT
  Age: 76 Year
  Sex: Female
  Weight: 81.65 kg

DRUGS (1)
  1. PRADAXA - 150 MG [Suspect]
     Dosage: 150 MG  2XDA  ORAL
     Route: 048
     Dates: start: 20120615, end: 20120717

REACTIONS (5)
  - Rash [None]
  - Pruritus [None]
  - Rash [None]
  - Rash [None]
  - Drug ineffective [None]
